FAERS Safety Report 8525890-2 (Version None)
Quarter: 2012Q3

REPORT INFORMATION
  Report Type: 
  Country: None (occurrence: None)
  Receive Date: 20120720
  Receipt Date: 20120719
  Transmission Date: 20120928
  Serious: No
  Sender: FDA-Public Use
  Company Number: US-B.I. PHARMACEUTICALS,INC./RIDGEFIELD-2012-BP-16162BP

PATIENT
  Sex: Female
  Weight: 77 kg

DRUGS (3)
  1. MEFORMIN [Concomitant]
     Indication: TYPE 2 DIABETES MELLITUS
     Dosage: 1000 MG
     Route: 048
     Dates: start: 20000101
  2. PRADAXA [Suspect]
     Indication: ATRIAL FIBRILLATION
     Dosage: 150 MG
     Route: 048
     Dates: start: 20060101
  3. ADVAIR DISKUS 100/50 [Concomitant]
     Indication: DYSPNOEA
     Dates: start: 20070101

REACTIONS (7)
  - ACTIVITIES OF DAILY LIVING IMPAIRED [None]
  - OXYGEN SATURATION DECREASED [None]
  - GAIT DISTURBANCE [None]
  - FATIGUE [None]
  - DYSPNOEA [None]
  - DYSPHONIA [None]
  - BODY HEIGHT DECREASED [None]
